FAERS Safety Report 9308528 (Version 1)
Quarter: 2013Q2

REPORT INFORMATION
  Report Type: Spontaneous
  Country: BA (occurrence: BA)
  Receive Date: 20130524
  Receipt Date: 20130524
  Transmission Date: 20140414
  Serious: Yes (Death)
  Sender: FDA-Public Use
  Company Number: BA-ROCHE-1228150

PATIENT
  Age: 42 Year
  Sex: Male

DRUGS (4)
  1. AVASTIN [Suspect]
     Indication: COLORECTAL CANCER
     Route: 042
  2. FOLINIC ACID [Concomitant]
     Indication: COLORECTAL CANCER
     Route: 042
  3. FLUOROURACIL [Concomitant]
     Indication: COLORECTAL CANCER
  4. OXALIPLATIN [Concomitant]
     Indication: COLORECTAL CANCER

REACTIONS (1)
  - Disease progression [Fatal]
